APPROVED DRUG PRODUCT: MESALAMINE
Active Ingredient: MESALAMINE
Strength: 1.2GM
Dosage Form/Route: TABLET, DELAYED RELEASE;ORAL
Application: A203574 | Product #001
Applicant: MYLAN PHARMACEUTICALS INC
Approved: Nov 20, 2018 | RLD: No | RS: No | Type: DISCN